FAERS Safety Report 14307357 (Version 1)
Quarter: 2017Q4

REPORT INFORMATION
  Report Type: Report from Study
  Country: FR (occurrence: FR)
  Receive Date: 20171220
  Receipt Date: 20171220
  Transmission Date: 20180321
  Serious: Yes (Life-Threatening, Hospitalization)
  Sender: FDA-Public Use
  Company Number: FR-VIFOR (INTERNATIONAL) INC.-VIT-2017-12876

PATIENT
  Age: 74 Year
  Sex: Male
  Weight: 70.5 kg

DRUGS (13)
  1. MIRCERA [Suspect]
     Active Substance: METHOXY POLYETHYLENE GLYCOL-EPOETIN BETA
     Indication: NEPHROGENIC ANAEMIA
     Route: 042
     Dates: start: 20090828
  2. UN ALFA [Concomitant]
     Active Substance: ALFACALCIDOL
     Dates: start: 20161122
  3. SINEMET [Concomitant]
     Active Substance: CARBIDOPA\LEVODOPA
     Dosage: 250*3 (UNIT NOT REPORTED)
     Dates: start: 20140704
  4. MIRCERA [Suspect]
     Active Substance: METHOXY POLYETHYLENE GLYCOL-EPOETIN BETA
     Route: 042
     Dates: start: 20160905
  5. INNOHEP [Concomitant]
     Active Substance: TINZAPARIN SODIUM
     Dates: start: 20161128
  6. KAYEXALATE [Concomitant]
     Active Substance: SODIUM POLYSTYRENE SULFONATE
     Dosage: 1/2 DOSAGE
     Dates: start: 20150401
  7. PRIMPERAN [Concomitant]
     Active Substance: METOCLOPRAMIDE HYDROCHLORIDE
     Dates: start: 20150914
  8. DUPHALAC [Concomitant]
     Active Substance: LACTULOSE
     Dates: start: 20121205
  9. CALCIUM CARBONATE. [Concomitant]
     Active Substance: CALCIUM CARBONATE
     Dates: start: 20160129
  10. RENVELA [Concomitant]
     Active Substance: SEVELAMER CARBONATE
     Dosage: 2.4G*3 (UNIT NOT REPORTED)
     Dates: start: 20160513
  11. MIRCERA [Suspect]
     Active Substance: METHOXY POLYETHYLENE GLYCOL-EPOETIN BETA
     Route: 042
     Dates: start: 20161216
  12. INEXIUM [Concomitant]
     Active Substance: ESOMEPRAZOLE
     Dates: start: 20160819
  13. VENOFER [Concomitant]
     Active Substance: IRON SUCROSE
     Dates: start: 20161026

REACTIONS (2)
  - Myelodysplastic syndrome [Not Recovered/Not Resolved]
  - Hyperthermia [Recovered/Resolved]

NARRATIVE: CASE EVENT DATE: 20161207
